FAERS Safety Report 7547986-4 (Version None)
Quarter: 2011Q2

REPORT INFORMATION
  Report Type: 
  Country: None (occurrence: None)
  Receive Date: 20110615
  Receipt Date: 20110607
  Transmission Date: 20111010
  Serious: Yes (Hospitalization)
  Sender: FDA-Public Use
  Company Number: GB-SHIRE-ALL1-2011-01753

PATIENT
  Age: 56 Year
  Sex: Female

DRUGS (1)
  1. MESALAMINE [Suspect]
     Indication: PROCTITIS ULCERATIVE
     Dosage: 3.6 G, 1X/DAY:QD (1.2 G, THREE ONCE DAILY)
     Route: 048

REACTIONS (3)
  - CONTUSION [None]
  - PURPURA [None]
  - THROMBOCYTOPENIA [None]
